FAERS Safety Report 13090359 (Version 1)
Quarter: 2017Q1

REPORT INFORMATION
  Report Type: Spontaneous
  Country: US (occurrence: US)
  Receive Date: 20170105
  Receipt Date: 20170105
  Transmission Date: 20170428
  Serious: No
  Sender: FDA-Public Use
  Company Number: US-ENDO PHARMACEUTICALS INC.-2016-003409

PATIENT
  Age: 48 Year
  Sex: Male
  Weight: 90.8 kg

DRUGS (2)
  1. CIALIS [Concomitant]
     Active Substance: TADALAFIL
     Indication: ERECTILE DYSFUNCTION
  2. FORTESTA [Suspect]
     Active Substance: TESTOSTERONE
     Indication: BLOOD TESTOSTERONE DECREASED
     Route: 061
     Dates: start: 20160509

REACTIONS (2)
  - Application site exfoliation [Recovering/Resolving]
  - Product physical issue [Not Recovered/Not Resolved]

NARRATIVE: CASE EVENT DATE: 201605
